FAERS Safety Report 21908135 (Version 1)
Quarter: 2023Q1

REPORT INFORMATION
  Report Type: Spontaneous
  Country: US (occurrence: US)
  Receive Date: 20230125
  Receipt Date: 20230125
  Transmission Date: 20230418
  Serious: Yes (Other)
  Sender: FDA-Public Use
  Company Number: US-Hikma Pharmaceuticals USA Inc.-US-H14001-23-00128

PATIENT
  Age: 30 Year
  Sex: Male

DRUGS (5)
  1. CISPLATIN [Suspect]
     Active Substance: CISPLATIN
     Indication: Malignant melanoma stage IV
     Route: 042
  2. IPILIMUMAB [Suspect]
     Active Substance: IPILIMUMAB
     Indication: Malignant melanoma stage IV
     Route: 042
  3. NIVOLUMAB [Suspect]
     Active Substance: NIVOLUMAB
     Indication: Malignant melanoma stage IV
     Route: 042
  4. VINBLASTINE [Suspect]
     Active Substance: VINBLASTINE
     Indication: Malignant melanoma stage IV
     Route: 042
  5. TEMOZOLOMIDE [Suspect]
     Active Substance: TEMOZOLOMIDE
     Indication: Malignant melanoma stage IV
     Route: 048

REACTIONS (2)
  - Metastasis [Not Recovered/Not Resolved]
  - Drug ineffective [Unknown]
